FAERS Safety Report 12291076 (Version 1)
Quarter: 2016Q2

REPORT INFORMATION
  Report Type: Spontaneous
  Country: US (occurrence: US)
  Receive Date: 20160421
  Receipt Date: 20160421
  Transmission Date: 20160815
  Serious: Yes (Hospitalization)
  Sender: FDA-Public Use
  Company Number: US-BAYER-2016-070939

PATIENT
  Age: 61 Year
  Sex: Female
  Weight: 83.9 kg

DRUGS (7)
  1. LYRICA [Suspect]
     Active Substance: PREGABALIN
     Indication: NERVE INJURY
     Dosage: 200 MG, TID
     Dates: start: 2008
  2. PROTONIX [Concomitant]
     Active Substance: PANTOPRAZOLE SODIUM
     Indication: GASTROOESOPHAGEAL REFLUX DISEASE
     Dosage: 2 DF, BID
     Dates: start: 2016
  3. FLEXERIL [Concomitant]
     Active Substance: CYCLOBENZAPRINE HYDROCHLORIDE
     Indication: MUSCLE SPASMS
     Dosage: 10 MG, TID
     Dates: start: 2008
  4. BAYER LOW DOSE [Suspect]
     Active Substance: ASPIRIN
     Dosage: 81 MG, QD
     Dates: start: 2016
  5. KLONOPIN [Suspect]
     Active Substance: CLONAZEPAM
     Indication: INSOMNIA
     Dosage: 1 MG, PRN
     Dates: start: 2008
  6. BAYER GENUINE ASPIRIN [Suspect]
     Active Substance: ASPIRIN
     Indication: ISCHAEMIC HEART DISEASE PROPHYLAXIS
     Dosage: 325 MG, QD
  7. HYDROCODONE [Concomitant]
     Active Substance: HYDROCODONE
     Indication: PAIN
     Dosage: 10/325 MG THREE TIMES A DAY, PRN
     Dates: start: 2008

REACTIONS (8)
  - Pain in extremity [None]
  - Feeling abnormal [None]
  - Coronary artery occlusion [Recovered/Resolved]
  - Anxiety [Not Recovered/Not Resolved]
  - Blood pressure increased [None]
  - Withdrawal syndrome [None]
  - Myocardial infarction [Recovered/Resolved]
  - Product use issue [None]

NARRATIVE: CASE EVENT DATE: 20151219
